FAERS Safety Report 5356615-X (Version None)
Quarter: 2007Q2

REPORT INFORMATION
  Report Type: 
  Country: None (occurrence: None)
  Receive Date: 20070614
  Receipt Date: 20070611
  Transmission Date: 20071010
  Serious: Yes (Other)
  Sender: FDA-Public Use
  Company Number: PHEH2007US08592

PATIENT
  Age: 67 Year
  Sex: Male

DRUGS (6)
  1. DIOVAN [Suspect]
     Indication: HYPERTENSION
     Dosage: 40 MG, QD
     Route: 048
     Dates: start: 20070607, end: 20070608
  2. INSULIN [Concomitant]
     Dosage: UNK, UNK
  3. METFORMIN HCL [Concomitant]
     Dosage: UNK, UNK
  4. VITAMIN CAP [Concomitant]
     Dosage: UNK, UNK
  5. ASPIRIN [Concomitant]
     Dosage: 81MG, UNK
  6. LUPRON [Concomitant]
     Dosage: UNK, UNK

REACTIONS (1)
  - BLOOD GLUCOSE INCREASED [None]
